FAERS Safety Report 5156910-3 (Version None)
Quarter: 2006Q4

REPORT INFORMATION
  Report Type: 
  Country: None (occurrence: None)
  Receive Date: 20060918
  Receipt Date: 20051213
  Transmission Date: 20070319
  Serious: Yes (Other)
  Sender: FDA-Public Use
  Company Number: US-JNJFOC-20051204031

PATIENT
  Age: 35 Year
  Sex: Female
  Weight: 68.0396 kg

DRUGS (3)
  1. TOPAMAX [Suspect]
     Indication: MIGRAINE
     Dosage: 25 MG, 1 IN 24 HOUR, ORAL
     Route: 048
     Dates: start: 20051201
  2. SYMBALTA (ALL OTHER THERAPEUTIC PRODUCTS) [Concomitant]
  3. YASMIN (PETIBELLE FILMTABLETTEN) [Concomitant]

REACTIONS (1)
  - MYOPIA [None]
